FAERS Safety Report 11197209 (Version 1)
Quarter: 2015Q2

REPORT INFORMATION
  Report Type: Spontaneous
  Country: US (occurrence: US)
  Receive Date: 20150617
  Receipt Date: 20150617
  Transmission Date: 20150821
  Serious: No
  Sender: FDA-Public Use
  Company Number: US-SA-2014SA139012

PATIENT
  Age: 52 Year
  Sex: Female
  Weight: 54.43 kg

DRUGS (6)
  1. SODIUM CHLORIDE. [Concomitant]
     Active Substance: SODIUM CHLORIDE
  2. CEREZYME [Suspect]
     Active Substance: IMIGLUCERASE
     Indication: LIPIDOSIS
     Route: 042
     Dates: start: 20100106
  3. CALTRATE [Concomitant]
     Active Substance: CALCIUM CARBONATE
  4. WATER. [Concomitant]
     Active Substance: WATER
  5. EPINEPHRINE. [Concomitant]
     Active Substance: EPINEPHRINE
  6. NORMAL SALINE [Concomitant]
     Active Substance: SODIUM CHLORIDE

REACTIONS (1)
  - Cystitis [Unknown]
